FAERS Safety Report 7278425-9 (Version None)
Quarter: 2011Q1

REPORT INFORMATION
  Report Type: 
  Country: None (occurrence: None)
  Receive Date: 20110202
  Receipt Date: 20110202
  Transmission Date: 20110831
  Serious: Yes (Life-Threatening, Disabling)
  Sender: FDA-Public Use
  Company Number: None

PATIENT
  Sex: Female
  Weight: 81 kg

DRUGS (2)
  1. LACTATED RINGER'S, USP 1000 ML BAG BAXTER/VCU HEALTH SYSTEM [Suspect]
  2. PITOCIN [Suspect]
     Indication: POSTPARTUM HAEMORRHAGE
     Dosage: 20 UNITS OXYTOCIN ONCE IV
     Route: 042
     Dates: start: 20110111, end: 20110111

REACTIONS (3)
  - ERYTHEMA [None]
  - DYSPNOEA [None]
  - HYPERSENSITIVITY [None]
